FAERS Safety Report 5537135-6 (Version None)
Quarter: 2007Q4

REPORT INFORMATION
  Report Type: 
  Country: None (occurrence: None)
  Receive Date: 20071207
  Receipt Date: 20071126
  Transmission Date: 20080405
  Serious: Yes (Death, Life-Threatening, Hospitalization)
  Sender: FDA-Public Use
  Company Number: FR-JNJFOC-20071200237

PATIENT
  Sex: Male

DRUGS (12)
  1. CONTRAMAL [Suspect]
     Indication: DRUG USE FOR UNKNOWN INDICATION
     Route: 048
     Dates: start: 20060624, end: 20070721
  2. PREVISCAN [Interacting]
     Route: 065
  3. PREVISCAN [Interacting]
     Route: 065
  4. PREVISCAN [Interacting]
     Route: 065
  5. PREVISCAN [Interacting]
     Indication: ATRIAL FIBRILLATION
     Dosage: TREATMENT BEGAN ^YEARS AGO^
     Route: 065
  6. CIFLOX [Suspect]
     Indication: URINARY TRACT INFECTION
     Route: 065
  7. CORDARONE [Suspect]
     Indication: ATRIAL FIBRILLATION
     Dosage: TREATMENT BEGAN ^YEARS AGO^
     Route: 065
  8. ATROVENT [Concomitant]
     Route: 065
  9. BRICANYL [Concomitant]
     Route: 065
  10. ESIDRIX [Concomitant]
     Route: 065
  11. LASIX [Concomitant]
     Route: 065
  12. INSULATARD [Concomitant]
     Route: 065

REACTIONS (10)
  - ANAEMIA [None]
  - DRUG INTERACTION [None]
  - HAEMATOMA [None]
  - HYPOVOLAEMIC SHOCK [None]
  - INFUSION SITE HAEMORRHAGE [None]
  - INTERNATIONAL NORMALISED RATIO INCREASED [None]
  - RENAL IMPAIRMENT [None]
  - RESPIRATORY DISTRESS [None]
  - URINARY TRACT INFECTION [None]
  - WOUND HAEMORRHAGE [None]
